FAERS Safety Report 5186261-2 (Version None)
Quarter: 2006Q4

REPORT INFORMATION
  Report Type: 
  Country: None (occurrence: None)
  Receive Date: 20061213
  Receipt Date: 20060925
  Transmission Date: 20070319
  Serious: Yes (Other)
  Sender: FDA-Public Use
  Company Number: 2006SP003096

PATIENT
  Age: 29 Year
  Sex: Female

DRUGS (1)
  1. DESLORATADINE [Suspect]
     Indication: HYPERSENSITIVITY
     Dosage: 1 DF; ONCE; PO
     Route: 048
     Dates: start: 20060924, end: 20060925

REACTIONS (1)
  - EPISTAXIS [None]
